FAERS Safety Report 5525465-3 (Version None)
Quarter: 2007Q4

REPORT INFORMATION
  Report Type: 
  Country: None (occurrence: None)
  Receive Date: 20071120
  Receipt Date: 20071120
  Transmission Date: 20080405
  Serious: Yes (Other)
  Sender: FDA-Public Use
  Company Number: None

PATIENT
  Age: 17 Year
  Sex: Male
  Weight: 59.4212 kg

DRUGS (6)
  1. OPANA ER [Suspect]
     Indication: PAIN
     Dosage: 20 MG 2X DAILY, EX 12HRS PO
     Route: 048
     Dates: start: 20071025, end: 20071120
  2. ROZEREM [Suspect]
     Indication: INSOMNIA
     Dosage: 8 MG 1X, AT BEDTIME PO
     Route: 048
     Dates: start: 20071116, end: 20071120
  3. XYZAL [Concomitant]
  4. ATENOLOL [Concomitant]
  5. COLACE [Concomitant]
  6. ACETAMINOPHEN AND HYDROCODONE BITARTRATE [Concomitant]

REACTIONS (4)
  - HALLUCINATION [None]
  - INSOMNIA [None]
  - NIGHTMARE [None]
  - SLEEP PARALYSIS [None]
